FAERS Safety Report 24429178 (Version 2)
Quarter: 2024Q4

REPORT INFORMATION
  Report Type: Report from Study
  Country: US (occurrence: US)
  Receive Date: 20241011
  Receipt Date: 20241224
  Transmission Date: 20250114
  Serious: No
  Sender: JAZZ
  Company Number: US-JAZZ PHARMACEUTICALS-2024-US-017370

PATIENT
  Sex: Female
  Weight: 139.25 kg

DRUGS (1)
  1. EPIDIOLEX [Suspect]
     Active Substance: CANNABIDIOL
     Indication: Product used for unknown indication
     Dosage: 1.5 MILLILITER, BID (2.15MG/KG/DAY)
     Route: 048
     Dates: start: 20240710

REACTIONS (2)
  - Seizure [Recovering/Resolving]
  - Dysarthria [Recovering/Resolving]
